FAERS Safety Report 8264382-5 (Version None)
Quarter: 2012Q2

REPORT INFORMATION
  Report Type: 
  Country: None (occurrence: None)
  Receive Date: 20120406
  Receipt Date: 20120330
  Transmission Date: 20120825
  Serious: Yes (Other)
  Sender: FDA-Public Use
  Company Number: PHHY2012BR028223

PATIENT
  Sex: Male

DRUGS (5)
  1. DIOVAN [Suspect]
     Indication: HYPERTENSION
     Dosage: 1 TABLET (160 MG) DAILY
     Route: 048
     Dates: end: 20120101
  2. RASILEZ [Suspect]
     Indication: HYPERTENSION
     Dosage: 1 TABLET (320 MG) DAILY
     Route: 048
     Dates: end: 20120101
  3. AMLODIPINE [Concomitant]
     Indication: HYPERTENSION
     Dosage: 1 TABLET (5 MG) DAILY
     Dates: start: 20120101
  4. LOSARTAN POTASSIUM [Concomitant]
     Indication: HYPERTENSION
     Dosage: 1 TABLET (50 MG) DAILY
     Route: 048
     Dates: start: 20120101
  5. CLONAZEPAM [Concomitant]
     Indication: INSOMNIA
     Dosage: 1 TABLET (6 MG) DAILY
     Route: 048

REACTIONS (4)
  - CONVULSION [None]
  - DYSPHONIA [None]
  - APHAGIA [None]
  - OESOPHAGEAL CARCINOMA [None]
